FAERS Safety Report 4779149-X (Version None)
Quarter: 2005Q3

REPORT INFORMATION
  Report Type: 
  Country: None (occurrence: None)
  Receive Date: 20050923
  Receipt Date: 20050913
  Transmission Date: 20060218
  Serious: No
  Sender: FDA-Public Use
  Company Number: MK200509-0153-1

PATIENT
  Age: 66 Year
  Sex: Female

DRUGS (3)
  1. NEUTROSPEC [Suspect]
     Indication: PYREXIA
     Dosage: 22.2 MCI, ONE TIME, IV
     Route: 042
     Dates: start: 20050913, end: 20050913
  2. INSULIN [Concomitant]
  3. DURAGESIC AND DILAUDID [Concomitant]

REACTIONS (3)
  - BLOOD PRESSURE INCREASED [None]
  - DYSPNOEA [None]
  - OXYGEN SATURATION DECREASED [None]
